APPROVED DRUG PRODUCT: RANITIDINE HYDROCHLORIDE
Active Ingredient: RANITIDINE HYDROCHLORIDE
Strength: EQ 15MG BASE/ML
Dosage Form/Route: SYRUP;ORAL
Application: A091288 | Product #001
Applicant: LANNETT CO INC
Approved: Dec 9, 2010 | RLD: No | RS: No | Type: DISCN